FAERS Safety Report 5032965-1 (Version None)
Quarter: 2006Q2

REPORT INFORMATION
  Report Type: 
  Country: None (occurrence: None)
  Receive Date: 20060515
  Receipt Date: 20060303
  Transmission Date: 20061013
  Serious: No
  Sender: FDA-Public Use
  Company Number: S06-USA-01038-01

PATIENT
  Age: 80 Year
  Sex: Female

DRUGS (5)
  1. NAMENDA [Suspect]
     Indication: AMNESIA
     Dosage: 5 MG QHS  PO
     Route: 048
     Dates: start: 20060210
  2. ARICEPT [Concomitant]
  3. ATACAND [Concomitant]
  4. NORVASC [Concomitant]
  5. TYLENOL (CAPLET) [Concomitant]

REACTIONS (3)
  - DECREASED APPETITE [None]
  - FEELING ABNORMAL [None]
  - FREQUENT BOWEL MOVEMENTS [None]
